FAERS Safety Report 5815749-3 (Version None)
Quarter: 2008Q3

REPORT INFORMATION
  Report Type: 
  Country: None (occurrence: None)
  Receive Date: 20080721
  Receipt Date: 20080708
  Transmission Date: 20090109
  Serious: Yes (Death, Hospitalization)
  Sender: FDA-Public Use
  Company Number: FR-SANOFI-SYNTHELABO-A02200802123

PATIENT
  Sex: Female

DRUGS (5)
  1. ACETAMINOPHEN [Concomitant]
     Dosage: UNK
     Route: 042
  2. CAMPTOSAR [Suspect]
     Route: 042
     Dates: start: 20080415, end: 20080415
  3. LEDERFOLINE [Suspect]
     Route: 042
     Dates: start: 20080415, end: 20080415
  4. ELOXATIN [Suspect]
     Route: 042
     Dates: start: 20080327, end: 20080327
  5. FLUOROURACILE DAKOTA [Suspect]
     Indication: METASTATIC GASTRIC CANCER
     Route: 042
     Dates: start: 20080415, end: 20080415

REACTIONS (6)
  - BLOOD LACTATE DEHYDROGENASE INCREASED [None]
  - HAEMOGLOBIN DECREASED [None]
  - HAEMOLYTIC URAEMIC SYNDROME [None]
  - RENAL FAILURE [None]
  - RETICULOCYTE COUNT DECREASED [None]
  - THROMBOCYTOPENIA [None]
